FAERS Safety Report 8325286-2 (Version None)
Quarter: 2012Q2

REPORT INFORMATION
  Report Type: 
  Country: None (occurrence: None)
  Receive Date: 20120501
  Receipt Date: 20120425
  Transmission Date: 20120825
  Serious: Yes (Hospitalization)
  Sender: FDA-Public Use
  Company Number: US-ASTRAZENECA-2012SE27241

PATIENT
  Age: 23 Year
  Sex: Male

DRUGS (3)
  1. LEXAPRO [Concomitant]
  2. SEROQUEL XR [Suspect]
     Indication: SCHIZOAFFECTIVE DISORDER BIPOLAR TYPE
     Route: 048
  3. ZYPREXA [Concomitant]

REACTIONS (1)
  - FEELING ABNORMAL [None]
